FAERS Safety Report 4888105-2 (Version None)
Quarter: 2006Q1

REPORT INFORMATION
  Report Type: 
  Country: None (occurrence: None)
  Receive Date: 20060123
  Receipt Date: 20051005
  Transmission Date: 20060701
  Serious: Yes (Hospitalization)
  Sender: FDA-Public Use
  Company Number: US-MERCK-0510USA05588

PATIENT
  Age: 52 Year
  Sex: Female
  Weight: 64 kg

DRUGS (2)
  1. VIOXX [Suspect]
     Indication: INTERVERTEBRAL DISC PROTRUSION
     Route: 048
     Dates: start: 19990101, end: 20000101
  2. VIOXX [Suspect]
     Indication: SCOLIOSIS
     Route: 048
     Dates: start: 19990101, end: 20000101

REACTIONS (6)
  - CARDIAC DISORDER [None]
  - CARDIOVASCULAR DISORDER [None]
  - CHOLECYSTECTOMY [None]
  - DEPRESSION [None]
  - GALLBLADDER DISORDER [None]
  - MYOCARDIAL INFARCTION [None]
